FAERS Safety Report 19057377 (Version 3)
Quarter: 2021Q2

REPORT INFORMATION
  Report Type: Report from Study
  Country: US (occurrence: US)
  Receive Date: 20210325
  Receipt Date: 20210602
  Transmission Date: 20210717
  Serious: Yes (Other)
  Sender: FDA-Public Use
  Company Number: US-TAKEDA-2021TUS019265

PATIENT
  Sex: Male
  Weight: 65 kg

DRUGS (17)
  1. MAGNESIUM [Concomitant]
     Active Substance: MAGNESIUM
     Route: 065
  2. ALLEGRA?D [Concomitant]
     Active Substance: FEXOFENADINE HYDROCHLORIDE\PSEUDOEPHEDRINE HYDROCHLORIDE
     Route: 065
  3. ALPRAZOLAM. [Concomitant]
     Active Substance: ALPRAZOLAM
     Route: 065
  4. AUGMENTIN [Concomitant]
     Active Substance: AMOXICILLIN\CLAVULANATE POTASSIUM
  5. HUMAN IMMUNOGLOBULIN; HYALURONIDASE [Suspect]
     Active Substance: HUMAN IMMUNOGLOBULIN G\HYALURONIDASE RECOMBINANT HUMAN
     Indication: PRODUCT USED FOR UNKNOWN INDICATION
     Dosage: 25 GRAM, Q4WEEKS
     Route: 058
     Dates: start: 20210316
  6. DIPHENHYDRAMINE. [Concomitant]
     Active Substance: DIPHENHYDRAMINE
     Route: 065
  7. PROPRANOLOL [Concomitant]
     Active Substance: PROPRANOLOL HYDROCHLORIDE
     Route: 065
  8. CALTRATE [Concomitant]
     Active Substance: CALCIUM CARBONATE
     Route: 065
  9. EPINEPHRINE. [Concomitant]
     Active Substance: EPINEPHRINE
     Route: 065
  10. ZITHROMAX [Concomitant]
     Active Substance: AZITHROMYCIN DIHYDRATE
  11. ACETAMINOPHEN. [Concomitant]
     Active Substance: ACETAMINOPHEN
     Route: 065
  12. NORMAL SALINE [Concomitant]
     Active Substance: SODIUM CHLORIDE
     Route: 065
  13. FOLVITE [FOLIC ACID] [Concomitant]
     Route: 065
  14. BACTRIM [Concomitant]
     Active Substance: SULFAMETHOXAZOLE\TRIMETHOPRIM
  15. FEXOFENADINE [FEXOFENADINE HYDROCHLORIDE] [Concomitant]
  16. OMEGA 3 [FISH OIL] [Concomitant]
     Active Substance: FISH OIL
     Route: 065
  17. TERBINAFINE [TERBINAFINE HYDROCHLORIDE] [Concomitant]

REACTIONS (6)
  - Infusion site pruritus [Recovering/Resolving]
  - Hepatic enzyme increased [Unknown]
  - Injection site pain [Unknown]
  - Thrombocytopenia [Unknown]
  - Tendon injury [Unknown]
  - Infusion site erythema [Unknown]
